FAERS Safety Report 15147162 (Version 1)
Quarter: 2018Q3

REPORT INFORMATION
  Report Type: Report from Study
  Country: DE (occurrence: DE)
  Receive Date: 20180716
  Receipt Date: 20180716
  Transmission Date: 20181010
  Serious: Yes (Hospitalization)
  Sender: FDA-Public Use
  Company Number: DE-TEVA-2018-DE-925723

PATIENT
  Age: 67 Year
  Sex: Male
  Weight: 85 kg

DRUGS (8)
  1. PANITUMUMAB [Suspect]
     Active Substance: PANITUMUMAB
     Indication: COLORECTAL CANCER METASTATIC
     Dosage: 510 MG, UNK
     Route: 042
     Dates: start: 20170803
  2. ATROPIN SULFAT [Concomitant]
     Active Substance: ATROPINE SULFATE
     Dosage: 0.25 MG, QCYCLE
     Route: 058
     Dates: start: 20170803
  3. ZOFRAN [Concomitant]
     Active Substance: ONDANSETRON HYDROCHLORIDE
     Dosage: 8 MG, QCYCLE
     Route: 042
     Dates: start: 20170803
  4. FOLINIC ACID [Suspect]
     Active Substance: LEUCOVORIN
     Indication: COLORECTAL CANCER METASTATIC
     Route: 065
     Dates: start: 20170803
  5. IRINOTECAN [Suspect]
     Active Substance: IRINOTECAN
     Indication: COLORECTAL CANCER METASTATIC
     Route: 065
     Dates: start: 20170803
  6. FLUOROURACIL. [Suspect]
     Active Substance: FLUOROURACIL
     Indication: COLORECTAL CANCER METASTATIC
     Route: 042
     Dates: start: 20170803
  7. LEVOMETHADONE [Concomitant]
     Active Substance: LEVOMETHADONE
     Dosage: 7.5 MILLIGRAM DAILY; 3.75 MG, BID
     Route: 048
     Dates: start: 20170724
  8. MOTILIUM [Concomitant]
     Active Substance: DOMPERIDONE
     Dosage: 3 ML, QCYCLE
     Route: 048
     Dates: start: 20170803

REACTIONS (2)
  - Vomiting [Recovered/Resolved]
  - Acne [Not Recovered/Not Resolved]

NARRATIVE: CASE EVENT DATE: 20170818
